FAERS Safety Report 5849300-9 (Version None)
Quarter: 2008Q3

REPORT INFORMATION
  Report Type: 
  Country: None (occurrence: None)
  Receive Date: 20080815
  Receipt Date: 20080804
  Transmission Date: 20090109
  Serious: Yes (Hospitalization, Other)
  Sender: FDA-Public Use
  Company Number: NALX20080002

PATIENT
  Age: 57 Year
  Sex: Female
  Weight: 55 kg

DRUGS (6)
  1. NALOXONE [Suspect]
     Indication: OVERDOSE
     Dosage: 0.4 MG, 3 DOSES, INTRAVENOUS
     Route: 042
  2. FENTANYL-25 [Concomitant]
  3. LAMOTRIGINE [Concomitant]
  4. OXYCODONE HCL [Concomitant]
  5. BUPROPION HCL [Concomitant]
  6. DULOXETINE [Concomitant]

REACTIONS (4)
  - FOAMING AT MOUTH [None]
  - LOSS OF CONSCIOUSNESS [None]
  - MIOSIS [None]
  - NEUROLEPTIC MALIGNANT SYNDROME [None]
